FAERS Safety Report 19154511 (Version 1)
Quarter: 2021Q2

REPORT INFORMATION
  Report Type: Spontaneous
  Country: CN (occurrence: CN)
  Receive Date: 20210419
  Receipt Date: 20210419
  Transmission Date: 20210717
  Serious: Yes (Other)
  Sender: FDA-Public Use
  Company Number: CN-BAYER-2021-124772

PATIENT
  Age: 70 Year
  Sex: Male
  Weight: 70 kg

DRUGS (1)
  1. NEXAVAR [Suspect]
     Active Substance: SORAFENIB
     Indication: HEPATIC CANCER
     Dosage: 200 MG, TID
     Route: 048
     Dates: start: 20210224, end: 20210316

REACTIONS (2)
  - Liver injury [Recovering/Resolving]
  - Off label use [None]

NARRATIVE: CASE EVENT DATE: 20210224
